FAERS Safety Report 5019533-2 (Version None)
Quarter: 2006Q2

REPORT INFORMATION
  Report Type: 
  Country: None (occurrence: None)
  Receive Date: 20060530
  Receipt Date: 20060512
  Transmission Date: 20061013
  Serious: Yes (Other)
  Sender: FDA-Public Use
  Company Number: DSA_28230_2006

PATIENT
  Age: 53 Year
  Sex: Male

DRUGS (14)
  1. TILDIEM [Suspect]
     Indication: ANGINA PECTORIS
     Dosage: 200 MG Q DAY PO
     Route: 048
     Dates: start: 20060316, end: 20060329
  2. CLOPIDOGREL [Suspect]
     Indication: ACUTE CORONARY SYNDROME
     Dosage: 75 MG Q DAY PO
     Route: 048
     Dates: start: 20060314, end: 20060329
  3. SIMVASTATIN [Suspect]
     Indication: BLOOD CHOLESTEROL INCREASED
     Dosage: 40 MG Q DAY PO
     Route: 048
     Dates: end: 20060329
  4. GTN-S [Concomitant]
  5. SERETIDE [Concomitant]
  6. IMDUR [Concomitant]
  7. RAMIPRIL [Concomitant]
  8. FRUSEMIDE [Concomitant]
  9. PREDNISOLONE [Concomitant]
  10. ASPIRIN [Concomitant]
  11. PHYLLOCONTIN [Concomitant]
  12. LANSOPRAZOLE [Concomitant]
  13. SALBUTAMOL [Concomitant]
  14. ATROVENT [Concomitant]

REACTIONS (3)
  - ANOREXIA [None]
  - JAUNDICE [None]
  - NAUSEA [None]
